FAERS Safety Report 18682506 (Version 1)
Quarter: 2020Q4

REPORT INFORMATION
  Report Type: Spontaneous
  Country: US (occurrence: US)
  Receive Date: 20201228
  Receipt Date: 20201228
  Transmission Date: 20210114
  Serious: Yes (Hospitalization)
  Sender: FDA-Public Use
  Company Number: None

PATIENT
  Age: 70 Year
  Sex: Female
  Weight: 61 kg

DRUGS (1)
  1. PALBOCICLIB [Suspect]
     Active Substance: PALBOCICLIB
     Indication: BREAST CANCER METASTATIC
     Route: 048
     Dates: start: 20200713, end: 20201128

REACTIONS (5)
  - Wheezing [None]
  - Tachypnoea [None]
  - Interstitial lung disease [None]
  - Cough [None]
  - Pulmonary fibrosis [None]

NARRATIVE: CASE EVENT DATE: 20201128
